FAERS Safety Report 5520217-2 (Version None)
Quarter: 2007Q4

REPORT INFORMATION
  Report Type: 
  Country: None (occurrence: None)
  Receive Date: 20071116
  Receipt Date: 20071112
  Transmission Date: 20080405
  Serious: Yes (Life-Threatening, Hospitalization)
  Sender: FDA-Public Use
  Company Number: JP-ABBOTT-07P-087-0424294-00

PATIENT
  Age: 65 Year
  Sex: Female
  Weight: 48 kg

DRUGS (8)
  1. SEVOFLURANE [Suspect]
     Indication: MAINTENANCE OF ANAESTHESIA
  2. PROPOFOL [Concomitant]
     Indication: INDUCTION OF ANAESTHESIA
     Route: 042
  3. VECURONIUM BROMIDE [Concomitant]
     Indication: INDUCTION OF ANAESTHESIA
     Route: 042
  4. VECURONIUM BROMIDE [Concomitant]
  5. FENTANYL CITRATE [Concomitant]
     Indication: INDUCTION OF ANAESTHESIA
     Route: 042
  6. FENTANYL CITRATE [Concomitant]
     Indication: MAINTENANCE OF ANAESTHESIA
  7. OXYGEN [Concomitant]
     Indication: MAINTENANCE OF ANAESTHESIA
  8. NITROUS OXIDE [Concomitant]
     Indication: MAINTENANCE OF ANAESTHESIA

REACTIONS (1)
  - DELAYED RECOVERY FROM ANAESTHESIA [None]
